FAERS Safety Report 22169840 (Version 1)
Quarter: 2023Q2

REPORT INFORMATION
  Report Type: Spontaneous
  Country: US (occurrence: US)
  Receive Date: 20230404
  Receipt Date: 20230404
  Transmission Date: 20230721
  Serious: No
  Sender: FDA-Public Use
  Company Number: US-SA-SAC20230403000460

PATIENT
  Sex: Male

DRUGS (15)
  1. KEVZARA [Suspect]
     Active Substance: SARILUMAB
     Indication: Rheumatoid arthritis
     Dosage: 200 MG, QOW
     Route: 058
  2. QUETIAPINE FUMARATE [Concomitant]
     Active Substance: QUETIAPINE FUMARATE
  3. TIZANIDINE HYDROCHLORIDE [Concomitant]
     Active Substance: TIZANIDINE HYDROCHLORIDE
  4. ACETAMINOPHEN\HYDROCODONE [Concomitant]
     Active Substance: ACETAMINOPHEN\HYDROCODONE
  5. ALBUTEROL SULFATE [Concomitant]
     Active Substance: ALBUTEROL SULFATE
  6. LINZESS [Concomitant]
     Active Substance: LINACLOTIDE
  7. TRULANCE [Concomitant]
     Active Substance: PLECANATIDE
  8. PREDNISONE [Concomitant]
     Active Substance: PREDNISONE
  9. AMOXICILLIN [Concomitant]
     Active Substance: AMOXICILLIN
  10. PANTOPRAZOLE SODIUM [Concomitant]
     Active Substance: PANTOPRAZOLE SODIUM
  11. PREGABALIN [Concomitant]
     Active Substance: PREGABALIN
  12. ESTRADIOL [Concomitant]
     Active Substance: ESTRADIOL
     Dosage: 150MG
  13. ELIQUIS [Concomitant]
     Active Substance: APIXABAN
  14. DESVENLAFAXINE SUCCINATE [Concomitant]
     Active Substance: DESVENLAFAXINE SUCCINATE
  15. LEVOTHYROXINE SODIUM [Concomitant]
     Active Substance: LEVOTHYROXINE SODIUM

REACTIONS (2)
  - Arthralgia [Unknown]
  - Drug ineffective [Unknown]
